FAERS Safety Report 8391334-7 (Version None)
Quarter: 2012Q2

REPORT INFORMATION
  Report Type: 
  Country: None (occurrence: None)
  Receive Date: 20120516
  Receipt Date: 20120503
  Transmission Date: 20120825
  Serious: Yes (Hospitalization)
  Sender: FDA-Public Use
  Company Number: 2012SP016936

PATIENT
  Sex: Female
  Weight: 71.5 kg

DRUGS (18)
  1. VALPROATE SODIUM [Concomitant]
  2. SERETIDE /01420901/ [Concomitant]
  3. PANADOL /00020001/ [Concomitant]
  4. CEFTRIAXONE [Concomitant]
  5. CARBAMAZEPINE [Suspect]
     Indication: CONVULSION
     Dosage: 100 MG;BID;PO
     Route: 048
     Dates: end: 20120101
  6. PANTOPRAZOLE [Concomitant]
  7. DOXYCYCLINE [Concomitant]
  8. METACLOPRAMIDE [Concomitant]
  9. ROXITHROMYCIN [Concomitant]
  10. FLUOXETINE [Concomitant]
  11. VALPROATE SODIUM [Concomitant]
  12. CLONAZEPAM [Concomitant]
  13. TEMAZEPAM [Concomitant]
  14. MAGMIN [Concomitant]
  15. ENOXAPARIN SODIUM [Concomitant]
  16. TEMODAL [Suspect]
     Indication: GLIOMA
     Dosage: 270 MG;PO
     Route: 048
     Dates: start: 20111201, end: 20120302
  17. LEVETIRACETAM [Concomitant]
  18. FLUOXETINE [Concomitant]

REACTIONS (6)
  - PNEUMOCYSTIS JIROVECI PNEUMONIA [None]
  - PNEUMONITIS [None]
  - PLEURAL EFFUSION [None]
  - GASTROENTERITIS VIRAL [None]
  - DRUG-INDUCED LIVER INJURY [None]
  - HYPONATRAEMIA [None]
